FAERS Safety Report 4752929-2 (Version None)
Quarter: 2005Q3

REPORT INFORMATION
  Report Type: 
  Country: None (occurrence: None)
  Receive Date: 20050823
  Receipt Date: 20041015
  Transmission Date: 20060218
  Serious: Yes (Other)
  Sender: FDA-Public Use
  Company Number: 14834

PATIENT
  Age: 60 Year
  Sex: Female

DRUGS (1)
  1. ETOPOSIDE [Suspect]
     Indication: SMALL CELL LUNG CANCER STAGE UNSPECIFIED
     Dosage: 100 MG/M2
     Dates: start: 20041013

REACTIONS (3)
  - BACK PAIN [None]
  - DYSPNOEA [None]
  - HYPOTENSION [None]
